FAERS Safety Report 12502947 (Version 2)
Quarter: 2016Q3

REPORT INFORMATION
  Report Type: Spontaneous
  Country: IT (occurrence: IT)
  Receive Date: 20160628
  Receipt Date: 20160710
  Transmission Date: 20161109
  Serious: Yes (Hospitalization)
  Sender: FDA-Public Use
  Company Number: IT-TEVA-670369ACC

PATIENT
  Age: 71 Year
  Sex: Female
  Weight: 50 kg

DRUGS (6)
  1. GEMCITABINE HYDROCHLORIDE. [Suspect]
     Active Substance: GEMCITABINE HYDROCHLORIDE
     Indication: LUNG ADENOCARCINOMA METASTATIC
     Dosage: 1800 MG TOTAL
     Route: 042
     Dates: start: 20160523, end: 20160523
  2. IVEMEND - 150 MG POLVERE PER SOLUZIONE PER INFUSIONE [Suspect]
     Active Substance: FOSAPREPITANT DIMEGLUMINE
     Indication: LUNG ADENOCARCINOMA METASTATIC
     Dosage: 150 MG TOTAL
     Route: 042
     Dates: start: 20160523, end: 20160523
  3. ASPIRINETTA - 100 MG COMPRESSE [Concomitant]
     Active Substance: ASPIRIN
     Indication: PRODUCT USED FOR UNKNOWN INDICATION
  4. CISPLATIN. [Suspect]
     Active Substance: CISPLATIN
     Indication: LUNG ADENOCARCINOMA METASTATIC
     Dosage: 90 MG TOTAL
     Route: 042
     Dates: start: 20160523, end: 20160523
  5. DAPAROX - COMPRESSE RIVESTITE CON FILM 20 MG [Concomitant]
     Active Substance: PAROXETINE HYDROCHLORIDE
     Indication: PRODUCT USED FOR UNKNOWN INDICATION
  6. VERAPAMIL HYDROCHLORIDE. [Concomitant]
     Active Substance: VERAPAMIL HYDROCHLORIDE
     Indication: PRODUCT USED FOR UNKNOWN INDICATION
     Dosage: 240 MG
     Route: 048

REACTIONS (3)
  - Oliguria [Recovered/Resolved]
  - Confusional state [Recovered/Resolved]
  - Respiratory failure [Recovered/Resolved]

NARRATIVE: CASE EVENT DATE: 20160524
